FAERS Safety Report 17800672 (Version 1)
Quarter: 2020Q2

REPORT INFORMATION
  Report Type: Spontaneous
  Country: US (occurrence: US)
  Receive Date: 20200518
  Receipt Date: 20200518
  Transmission Date: 20200714
  Serious: Yes (Hospitalization, Other)
  Sender: FDA-Public Use
  Company Number: US-NAPPMUNDI-USA-2020-0151599

PATIENT
  Sex: Male

DRUGS (1)
  1. OXYCONTIN [Suspect]
     Active Substance: OXYCODONE HYDROCHLORIDE
     Indication: PRODUCT USED FOR UNKNOWN INDICATION
     Dosage: UNK
     Route: 048
     Dates: start: 2000, end: 2004

REACTIONS (12)
  - Pain [Recovered/Resolved]
  - Fatigue [Recovered/Resolved]
  - Dizziness [Unknown]
  - Walking aid user [Unknown]
  - Hip fracture [Unknown]
  - Drug dependence [Recovered/Resolved]
  - Fall [Unknown]
  - Withdrawal syndrome [Recovered/Resolved]
  - Headache [Recovered/Resolved]
  - Diarrhoea [Recovered/Resolved]
  - Unevaluable event [Unknown]
  - Listless [Recovered/Resolved]

NARRATIVE: CASE EVENT DATE: 2000
